FAERS Safety Report 6851836-9 (Version None)
Quarter: 2010Q3

REPORT INFORMATION
  Report Type: 
  Country: None (occurrence: None)
  Receive Date: 20100717
  Receipt Date: 20071030
  Transmission Date: 20110219
  Serious: No
  Sender: FDA-Public Use
  Company Number: US-PFIZER INC-2007092626

PATIENT
  Sex: Female
  Weight: 79.4 kg

DRUGS (5)
  1. CHANTIX [Suspect]
     Indication: SMOKING CESSATION THERAPY
     Dosage: 0.5MG QD EVERYDAY TDD:0.5MG
     Dates: start: 20071001
  2. DEPAKOTE [Concomitant]
  3. OXYCONTIN [Concomitant]
  4. DRUG, UNSPECIFIED [Concomitant]
  5. CYMBALTA [Concomitant]

REACTIONS (2)
  - NAUSEA [None]
  - SLEEP DISORDER [None]
